FAERS Safety Report 5155069-6 (Version None)
Quarter: 2006Q4

REPORT INFORMATION
  Report Type: 
  Country: None (occurrence: None)
  Receive Date: 20061121
  Receipt Date: 20061102
  Transmission Date: 20070319
  Serious: Yes (Other)
  Sender: FDA-Public Use
  Company Number: US-GLAXOSMITHKLINE-A0626014A

PATIENT
  Age: 45 Year
  Sex: Male

DRUGS (3)
  1. LAMICTAL [Suspect]
     Route: 048
     Dates: start: 20050323
  2. DARVOCET [Concomitant]
     Indication: DRUG USE FOR UNKNOWN INDICATION
  3. FLEXERIL [Concomitant]
     Indication: DRUG USE FOR UNKNOWN INDICATION

REACTIONS (2)
  - DEPRESSION [None]
  - SUICIDAL IDEATION [None]
